FAERS Safety Report 13533547 (Version 5)
Quarter: 2017Q3

REPORT INFORMATION
  Report Type: Report from Study
  Country: US (occurrence: US)
  Receive Date: 20170510
  Receipt Date: 20170831
  Transmission Date: 20171127
  Serious: Yes (Hospitalization, Other)
  Sender: FDA-Public Use
  Company Number: US-ALEXION PHARMACEUTICALS INC-A201704877

PATIENT
  Sex: Male

DRUGS (1)
  1. SOLIRIS [Suspect]
     Active Substance: ECULIZUMAB
     Indication: PAROXYSMAL NOCTURNAL HAEMOGLOBINURIA
     Dosage: UNK
     Route: 042

REACTIONS (16)
  - Dysuria [Unknown]
  - Fatigue [Unknown]
  - White blood cell count decreased [Unknown]
  - Aplastic anaemia [Unknown]
  - Mobility decreased [Unknown]
  - Peripheral swelling [Unknown]
  - Depression [Unknown]
  - Haemoglobin decreased [Unknown]
  - Platelet count decreased [Unknown]
  - Blood count abnormal [Unknown]
  - Asthenia [Unknown]
  - Diarrhoea [Unknown]
  - Thrombosis [Unknown]
  - Myelodysplastic syndrome [Unknown]
  - Malaise [Unknown]
  - Blood iron increased [Unknown]
